FAERS Safety Report 25941075 (Version 1)
Quarter: 2025Q4

REPORT INFORMATION
  Report Type: Spontaneous
  Country: US (occurrence: US)
  Receive Date: 20251020
  Receipt Date: 20251020
  Transmission Date: 20260117
  Serious: Yes (Other)
  Sender: GLAXOSMITHKLINE
  Company Number: US-GLAXOSMITHKLINE INC-US2025127738

PATIENT
  Age: 36 Year
  Sex: Female

DRUGS (3)
  1. BENLYSTA [Suspect]
     Active Substance: BELIMUMAB
     Indication: Systemic lupus erythematosus
     Dosage: 200 MG, WE
  2. BENLYSTA [Suspect]
     Active Substance: BELIMUMAB
     Indication: Central nervous system lupus
  3. PREDNISONE [Concomitant]
     Active Substance: PREDNISONE
     Indication: Product used for unknown indication
     Dosage: 5-10MG DAILY

REACTIONS (4)
  - Cerebral palsy [Recovered/Resolved]
  - Memory impairment [Recovered/Resolved]
  - Headache [Not Recovered/Not Resolved]
  - Feeling drunk [Recovered/Resolved]

NARRATIVE: CASE EVENT DATE: 20251003
